FAERS Safety Report 4656190-9 (Version None)
Quarter: 2005Q2

REPORT INFORMATION
  Report Type: 
  Country: None (occurrence: None)
  Receive Date: 20050509
  Receipt Date: 20050202
  Transmission Date: 20051028
  Serious: No
  Sender: FDA-Public Use
  Company Number: US-GLAXOSMITHKLINE-A0543526A

PATIENT
  Age: 54 Year
  Sex: Female

DRUGS (1)
  1. AVANDAMET [Suspect]
     Route: 048

REACTIONS (1)
  - HEADACHE [None]
